FAERS Safety Report 4815460-1 (Version None)
Quarter: 2005Q4

REPORT INFORMATION
  Report Type: 
  Country: None (occurrence: None)
  Receive Date: 20051028
  Receipt Date: 20051028
  Transmission Date: 20060501
  Serious: Yes (Life-Threatening)
  Sender: FDA-Public Use
  Company Number: None

PATIENT
  Age: 69 Year
  Sex: Female
  Weight: 102.0593 kg

DRUGS (1)
  1. LISINOPRIL [Suspect]
     Indication: HYPERTENSION
     Dosage: ONCE DAILY PO
     Route: 048

REACTIONS (4)
  - APTYALISM [None]
  - DRY MOUTH [None]
  - LYMPHADENOPATHY [None]
  - ODYNOPHAGIA [None]
